FAERS Safety Report 9117224 (Version 1)
Quarter: 2013Q1

REPORT INFORMATION
  Report Type: Report from Study
  Country: CA (occurrence: CA)
  Receive Date: 20130225
  Receipt Date: 20130225
  Transmission Date: 20140127
  Serious: Yes (Hospitalization, Other)
  Sender: FDA-Public Use
  Company Number: CA-JNJFOC-20130209764

PATIENT
  Age: 51 Year
  Sex: Male
  Weight: 109 kg

DRUGS (2)
  1. REMICADE [Suspect]
     Indication: PSORIASIS
     Route: 042
     Dates: start: 20120803
  2. AVELOX [Suspect]
     Indication: SINUSITIS
     Route: 065
     Dates: start: 20130207, end: 201302

REACTIONS (2)
  - Toxicity to various agents [Unknown]
  - Sinusitis [Unknown]
